FAERS Safety Report 15298015 (Version 2)
Quarter: 2018Q4

REPORT INFORMATION
  Report Type: Spontaneous
  Country: JP (occurrence: JP)
  Receive Date: 20180820
  Receipt Date: 20181022
  Transmission Date: 20190204
  Serious: Yes (Life-Threatening, Hospitalization)
  Sender: FDA-Public Use
  Company Number: JP-TERSERA THERAPEUTICS LLC-TSR2018001682

PATIENT

DRUGS (1)
  1. ZOLADEX [Suspect]
     Active Substance: GOSERELIN ACETATE
     Indication: ENDOMETRIOSIS
     Dosage: 1.8 MILLIGRAM, Q4 WEEKS
     Route: 058
     Dates: start: 20180529

REACTIONS (2)
  - Vascular injury [Recovering/Resolving]
  - Intra-abdominal haematoma [Unknown]

NARRATIVE: CASE EVENT DATE: 20180627
